FAERS Safety Report 9821096 (Version 1)
Quarter: 2014Q1

REPORT INFORMATION
  Report Type: Spontaneous
  Country: US (occurrence: US)
  Receive Date: 20140116
  Receipt Date: 20140116
  Transmission Date: 20141002
  Serious: Yes (Hospitalization)
  Sender: FDA-Public Use
  Company Number: US-009507513-1401USA005427

PATIENT
  Age: 51 Year
  Sex: Female

DRUGS (3)
  1. JANUVIA [Suspect]
     Route: 048
  2. BYETTA [Suspect]
  3. VICTOZA [Suspect]
     Dosage: 1.8 MG, UNK

REACTIONS (5)
  - Intestinal ischaemia [Recovering/Resolving]
  - Large intestine polyp [Recovered/Resolved]
  - Large intestinal polypectomy [Unknown]
  - Large intestine polyp [Recovered/Resolved]
  - Large intestinal polypectomy [Unknown]
